FAERS Safety Report 6377405-5 (Version None)
Quarter: 2009Q3

REPORT INFORMATION
  Report Type: 
  Country: None (occurrence: None)
  Receive Date: 20090921
  Receipt Date: 20090907
  Transmission Date: 20100115
  Serious: Yes (Hospitalization)
  Sender: FDA-Public Use
  Company Number: 8051995

PATIENT
  Age: 44 Year
  Sex: Male

DRUGS (7)
  1. KEPPRA [Suspect]
     Dosage: 250 MG 2/D
     Dates: start: 20090701
  2. RIFADIN [Suspect]
     Dosage: 900 MG 2/D PO
     Route: 048
     Dates: start: 20090731, end: 20090816
  3. TARGOCID [Suspect]
     Dosage: 600 MG /D SC
     Route: 058
     Dates: start: 20090807
  4. LIORESAL [Suspect]
     Dates: start: 20090805
  5. IMOVANE [Suspect]
     Dosage: 0.9 ML 2/D
  6. KARDEGIC  /00002703/ [Suspect]
     Dosage: 160 MG /D
     Dates: end: 20090816
  7. LOVENOX [Suspect]
     Dates: start: 20090701, end: 20090816

REACTIONS (4)
  - ECCHYMOSIS [None]
  - PETECHIAE [None]
  - PURPURA [None]
  - THROMBOCYTOPENIA [None]
